FAERS Safety Report 8024319-0 (Version None)
Quarter: 2012Q1

REPORT INFORMATION
  Report Type: 
  Country: None (occurrence: None)
  Receive Date: 20120105
  Receipt Date: 20111223
  Transmission Date: 20120608
  Serious: Yes (Other)
  Sender: FDA-Public Use
  Company Number: US-ELI_LILLY_AND_COMPANY-US201108001120

PATIENT
  Sex: Female

DRUGS (17)
  1. LANOXIN [Concomitant]
  2. FUROSEMIDE [Concomitant]
  3. VITAMIN B-12 [Concomitant]
     Dosage: UNK, QD
  4. PATANOL [Concomitant]
     Indication: EYE PRURITUS
     Dosage: UNK, PRN
  5. Z-BEC                              /02374701/ [Concomitant]
     Dosage: UNK, QD
  6. FORTEO [Suspect]
     Dosage: 20 UG, QD
     Route: 065
  7. ALBUTEROL [Concomitant]
     Dosage: UNK, PRN
  8. NITRO                              /00003201/ [Concomitant]
     Dosage: UNK, PRN
  9. TUMS                               /00193601/ [Concomitant]
     Dosage: UNK, BID
  10. FORTEO [Suspect]
     Indication: OSTEOPOROSIS
     Dosage: 20 UG, QD
     Route: 065
  11. PEPCID [Concomitant]
     Dosage: UNK, QD
  12. VITAMINS NOS [Concomitant]
     Dosage: UNK, QD
  13. FORTEO [Suspect]
     Dosage: 20 UG, QD
     Route: 065
  14. OCUVITE                            /01053801/ [Concomitant]
     Dosage: UNK, QD
  15. ADVAIR DISKUS 100/50 [Concomitant]
     Indication: ASTHMA
     Dosage: UNK, BID
  16. VITAMIN D [Concomitant]
     Dosage: UNK, QD
  17. FORTEO [Suspect]
     Dosage: 20 UG, QD

REACTIONS (44)
  - MICTURITION URGENCY [None]
  - DIVERTICULUM [None]
  - RECTOCELE [None]
  - RHINORRHOEA [None]
  - BLOOD BLISTER [None]
  - IRRITABLE BOWEL SYNDROME [None]
  - FEELING ABNORMAL [None]
  - NERVOUSNESS [None]
  - SLEEP DISORDER [None]
  - OEDEMA PERIPHERAL [None]
  - COCCYDYNIA [None]
  - LIMB INJURY [None]
  - SKIN NECROSIS [None]
  - ASTHMA [None]
  - CARDIAC FAILURE CONGESTIVE [None]
  - FRACTURED COCCYX [None]
  - FOOD INTOLERANCE [None]
  - MALAISE [None]
  - HEART RATE INCREASED [None]
  - URINE FLOW DECREASED [None]
  - INJECTION SITE ERYTHEMA [None]
  - CONTUSION [None]
  - PAIN IN EXTREMITY [None]
  - FALL [None]
  - BALANCE DISORDER [None]
  - FATIGUE [None]
  - DRY SKIN [None]
  - HEADACHE [None]
  - BLISTER [None]
  - PERIPHERAL VASCULAR DISORDER [None]
  - INCREASED UPPER AIRWAY SECRETION [None]
  - ENTEROCELE [None]
  - CYSTOCELE [None]
  - ERYTHEMA [None]
  - RECTAL PROLAPSE [None]
  - PRURITUS [None]
  - DYSPNOEA [None]
  - DIARRHOEA [None]
  - DIZZINESS [None]
  - MUSCLE SPASMS [None]
  - OESOPHAGEAL DISORDER [None]
  - DYSPHAGIA [None]
  - PAIN [None]
  - NAUSEA [None]
